FAERS Safety Report 16828893 (Version 1)
Quarter: 2019Q3

REPORT INFORMATION
  Report Type: Spontaneous
  Country: CZ (occurrence: CZ)
  Receive Date: 20190919
  Receipt Date: 20190919
  Transmission Date: 20191005
  Serious: Yes (Hospitalization, Other)
  Sender: FDA-Public Use
  Company Number: CZ-MYLANLABS-2019M1087458

PATIENT
  Age: 87 Year
  Sex: Female

DRUGS (3)
  1. TRAMADOL. [Suspect]
     Active Substance: TRAMADOL
     Indication: ANALGESIC THERAPY
     Dosage: UNK
     Route: 065
  2. PARACETAMOL [Suspect]
     Active Substance: ACETAMINOPHEN
     Indication: ANALGESIC THERAPY
     Dosage: UNK
     Route: 065
  3. GABAPENTIN. [Suspect]
     Active Substance: GABAPENTIN
     Indication: ANALGESIC THERAPY
     Dosage: UNK
     Route: 065

REACTIONS (11)
  - Ulcerative keratitis [Unknown]
  - Weight decreased [Unknown]
  - Fracture [Unknown]
  - Decreased appetite [Unknown]
  - Drug ineffective [Unknown]
  - Asthenia [Recovering/Resolving]
  - Joint dislocation [Unknown]
  - Eye disorder [Recovering/Resolving]
  - Sarcopenia [Unknown]
  - Pubis fracture [Unknown]
  - Gait disturbance [Recovering/Resolving]
